FAERS Safety Report 4950711-4 (Version None)
Quarter: 2006Q1

REPORT INFORMATION
  Report Type: 
  Country: None (occurrence: None)
  Receive Date: 20060321
  Receipt Date: 20060321
  Transmission Date: 20060701
  Serious: Yes (Other)
  Sender: FDA-Public Use
  Company Number: None

PATIENT
  Age: 85 Year
  Sex: Male
  Weight: 62.1 kg

DRUGS (14)
  1. FENTANYL [Suspect]
  2. OXYCODONE [Concomitant]
  3. A + D OINT [Concomitant]
  4. DOCUSATE/SENNOSIDES [Concomitant]
  5. CITALOPRAM HYDROBROMIDE [Concomitant]
  6. CASTOR OIL/ PERUVIAN BALSAM/ TRYPSIN [Concomitant]
  7. ENEMA,  PHOSPHATE ENEMA [Concomitant]
  8. ACETAMINOPHEN [Concomitant]
  9. ASPIRIN [Concomitant]
  10. SIMVASTATIN [Concomitant]
  11. OMEPRAZOLE [Concomitant]
  12. MULTI-VITAMIN [Concomitant]
  13. METHOTREXATE [Concomitant]
  14. PROMETHAZINE [Concomitant]

REACTIONS (2)
  - NAUSEA [None]
  - VOMITING [None]
